FAERS Safety Report 6152995-6 (Version None)
Quarter: 2009Q2

REPORT INFORMATION
  Report Type: 
  Country: None (occurrence: None)
  Receive Date: 20090413
  Receipt Date: 20090403
  Transmission Date: 20091009
  Serious: Yes (Other)
  Sender: FDA-Public Use
  Company Number: A0767242A

PATIENT
  Age: 62 Year
  Sex: Male
  Weight: 77.3 kg

DRUGS (9)
  1. ZOFRAN [Suspect]
     Indication: NAUSEA
     Dosage: 3TAB PER DAY
     Route: 048
  2. OXALIPLATIN [Suspect]
     Indication: COLON CANCER
     Dosage: 253MG EVERY 3 WEEKS
     Route: 042
     Dates: start: 20080806, end: 20081212
  3. XELODA [Suspect]
     Indication: COLON CANCER
     Dosage: 1500MG TWICE PER DAY
     Dates: start: 20080701, end: 20081225
  4. PROCHLORPERAZINE EDISYLATE [Concomitant]
     Indication: NAUSEA
     Dates: start: 20081114
  5. SENNA [Concomitant]
     Dates: start: 20081001, end: 20090102
  6. DOCUSATE [Concomitant]
     Indication: CONSTIPATION
     Dosage: 2TAB PER DAY
     Dates: start: 20080901, end: 20090102
  7. ACETYLSALICYLIC ACID SRT [Concomitant]
     Dosage: 81MG PER DAY
  8. FILGRASTIM [Concomitant]
     Dosage: 480MG CYCLIC
     Route: 058
  9. SOTALOL HYDROCHLORIDE [Concomitant]
     Dates: start: 20090122

REACTIONS (4)
  - ATRIAL FIBRILLATION [None]
  - HEART RATE IRREGULAR [None]
  - MEDICATION ERROR [None]
  - NEUROPATHY PERIPHERAL [None]
